FAERS Safety Report 13642979 (Version 2)
Quarter: 2017Q2

REPORT INFORMATION
  Report Type: Spontaneous
  Country: ID (occurrence: ID)
  Receive Date: 20170612
  Receipt Date: 20170616
  Transmission Date: 20170830
  Serious: Yes (Hospitalization, Other)
  Sender: FDA-Public Use
  Company Number: ID-PFIZER INC-2017250519

PATIENT
  Age: 35 Year
  Sex: Male

DRUGS (8)
  1. MESNA. [Suspect]
     Active Substance: MESNA
     Indication: RHABDOMYOSARCOMA
     Dosage: UNK, CYCLIC
  2. IFOSFAMIDE. [Suspect]
     Active Substance: IFOSFAMIDE
     Indication: METASTASES TO LUNG
  3. DACARBAZINE. [Suspect]
     Active Substance: DACARBAZINE
     Indication: METASTASES TO LUNG
  4. MESNA. [Suspect]
     Active Substance: MESNA
     Indication: METASTASES TO LUNG
  5. DOXORUBICIN HCL [Suspect]
     Active Substance: DOXORUBICIN HYDROCHLORIDE
     Indication: RHABDOMYOSARCOMA
     Dosage: UNK, CYCLIC
  6. DACARBAZINE. [Suspect]
     Active Substance: DACARBAZINE
     Indication: RHABDOMYOSARCOMA
     Dosage: UNK, CYCLIC
  7. IFOSFAMIDE. [Suspect]
     Active Substance: IFOSFAMIDE
     Indication: RHABDOMYOSARCOMA
     Dosage: UNK, CYCLIC
  8. DOXORUBICIN HCL [Suspect]
     Active Substance: DOXORUBICIN HYDROCHLORIDE
     Indication: METASTASES TO LUNG

REACTIONS (1)
  - Pneumothorax spontaneous [Recovered/Resolved]
